FAERS Safety Report 20411098 (Version 1)
Quarter: 2022Q1

REPORT INFORMATION
  Report Type: Spontaneous
  Country: US (occurrence: None)
  Receive Date: 20220201
  Receipt Date: 20220201
  Transmission Date: 20220423
  Serious: Yes (Hospitalization)
  Sender: FDA-Public Use
  Company Number: None

PATIENT
  Age: 61 Year
  Sex: Male
  Weight: 102 kg

DRUGS (2)
  1. CARBOPLATIN [Suspect]
     Active Substance: CARBOPLATIN
     Dates: end: 20211201
  2. TAXOL [Suspect]
     Active Substance: PACLITAXEL
     Dates: end: 20211201

REACTIONS (7)
  - Post procedural complication [None]
  - Pleural effusion [None]
  - Chest pain [None]
  - Body temperature increased [None]
  - Feeling hot [None]
  - Wound complication [None]
  - Soft tissue swelling [None]

NARRATIVE: CASE EVENT DATE: 20220130
